FAERS Safety Report 4668484-1 (Version None)
Quarter: 2005Q2

REPORT INFORMATION
  Report Type: 
  Country: None (occurrence: None)
  Receive Date: 20050518
  Receipt Date: 20050428
  Transmission Date: 20051028
  Serious: Yes (Hospitalization)
  Sender: FDA-Public Use
  Company Number: B0379815A

PATIENT
  Age: 8 Year
  Sex: Female

DRUGS (4)
  1. AUGMENTIN '250' [Suspect]
     Indication: PRODUCTIVE COUGH
     Dosage: ORAL
     Route: 048
     Dates: start: 20040907, end: 20040909
  2. RHINOFLUIMUCIL SOLUTION (RHINOFLUIMUCIL) [Suspect]
     Indication: PRODUCTIVE COUGH
     Dosage: INTRANASAL
     Route: 045
     Dates: start: 20040831, end: 20040909
  3. AMYLASE SYRUP (AMYLASE) [Suspect]
     Indication: PRODUCTIVE COUGH
     Dosage: ORAL
     Route: 048
     Dates: start: 20040831, end: 20040909
  4. HELICIDINE SYRUP (HELICIDINE) [Suspect]
     Indication: PRODUCTIVE COUGH
     Dosage: ORAL
     Route: 048
     Dates: start: 20040831, end: 20040909

REACTIONS (4)
  - PNEUMONIA CHLAMYDIAL [None]
  - STEVENS-JOHNSON SYNDROME [None]
  - SYSTEMIC INFLAMMATORY RESPONSE SYNDROME [None]
  - WEIGHT INCREASED [None]
